FAERS Safety Report 16940539 (Version 1)
Quarter: 2019Q4

REPORT INFORMATION
  Report Type: Spontaneous
  Country: US (occurrence: US)
  Receive Date: 20191021
  Receipt Date: 20191021
  Transmission Date: 20200122
  Serious: Yes (Hospitalization)
  Sender: FDA-Public Use
  Company Number: US-VERTEX PHARMACEUTICALS-2019-009960

PATIENT
  Age: 23 Year
  Sex: Female

DRUGS (14)
  1. SYMBICORT [Concomitant]
     Active Substance: BUDESONIDE\FORMOTEROL FUMARATE DIHYDRATE
  2. IRON [Concomitant]
     Active Substance: IRON
  3. ZANTAC [Concomitant]
     Active Substance: RANITIDINE HYDROCHLORIDE
  4. KEPPRA [Concomitant]
     Active Substance: LEVETIRACETAM
  5. SYMDEKO [Suspect]
     Active Substance: IVACAFTOR\TEZACAFTOR
     Indication: CYSTIC FIBROSIS
     Dosage: 100MG TEZACAFTOR/150MG IVACAFTOR AM; 150MG IVACAFTOR PM
     Route: 048
     Dates: start: 20190125
  6. DIFICID [Concomitant]
     Active Substance: FIDAXOMICIN
  7. GABAPENTIN. [Concomitant]
     Active Substance: GABAPENTIN
  8. TOBI [Concomitant]
     Active Substance: TOBRAMYCIN
  9. PULMOZYME [Concomitant]
     Active Substance: DORNASE ALFA
  10. IPRATROPIUM [Concomitant]
     Active Substance: IPRATROPIUM
  11. MINOCYCLINE [Concomitant]
     Active Substance: MINOCYCLINE HYDROCHLORIDE
  12. ZENPEP [Concomitant]
     Active Substance: PANCRELIPASE AMYLASE\PANCRELIPASE LIPASE\PANCRELIPASE PROTEASE
  13. CITALOPRAM [Concomitant]
     Active Substance: CITALOPRAM HYDROBROMIDE
  14. ALBUTEROL [SALBUTAMOL] [Concomitant]
     Active Substance: ALBUTEROL

REACTIONS (1)
  - Cystic fibrosis [Not Recovered/Not Resolved]

NARRATIVE: CASE EVENT DATE: 2019
